FAERS Safety Report 10163170 (Version 2)
Quarter: 2014Q2

REPORT INFORMATION
  Report Type: Report from Study
  Country: US (occurrence: US)
  Receive Date: 20140509
  Receipt Date: 20140520
  Transmission Date: 20141212
  Serious: Yes (Hospitalization)
  Sender: FDA-Public Use
  Company Number: US-VIIV HEALTHCARE LIMITED-B0968073A

PATIENT
  Age: 42 Year
  Sex: Male
  Weight: 85 kg

DRUGS (14)
  1. MARAVIROC [Suspect]
     Indication: HIV INFECTION
     Dosage: 150MG TWICE PER DAY
     Route: 048
     Dates: start: 20130304
  2. DARUNAVIR [Concomitant]
     Dosage: 400MG TWICE PER DAY
     Dates: start: 20120820
  3. RITONAVIR [Concomitant]
     Dosage: 100MG PER DAY
     Dates: start: 20120820
  4. VIREAD [Concomitant]
     Dosage: 300MG PER DAY
     Dates: start: 20120926
  5. HYDROXYZINE [Concomitant]
     Indication: PRURITUS
     Route: 048
     Dates: start: 20120604
  6. AMITRIPTYLINE [Concomitant]
     Indication: INSOMNIA
     Route: 048
     Dates: start: 20130820
  7. DAPSONE [Concomitant]
     Indication: PROPHYLAXIS
     Route: 048
     Dates: start: 20121102
  8. HYDROCHLOROTHIAZIDE [Concomitant]
     Indication: HYPERTENSION
     Route: 048
     Dates: start: 20111011
  9. ALBUTEROL MDI [Concomitant]
     Indication: DYSPNOEA
     Route: 048
     Dates: start: 20120815
  10. OMEPRAZOLE [Concomitant]
     Indication: GASTROOESOPHAGEAL REFLUX DISEASE
     Route: 048
     Dates: start: 20100917
  11. SENNA [Concomitant]
     Indication: CONSTIPATION
     Route: 048
     Dates: start: 20120815
  12. PERCOCET [Concomitant]
     Indication: PAIN
     Route: 048
     Dates: start: 20100812
  13. NAPROXEN [Concomitant]
     Indication: PAIN
     Route: 048
     Dates: start: 20130304
  14. MULTIVITAMIN [Concomitant]
     Indication: SUPPLEMENTATION THERAPY
     Route: 048
     Dates: start: 20120509

REACTIONS (1)
  - Diffuse large B-cell lymphoma [Not Recovered/Not Resolved]
